FAERS Safety Report 16138297 (Version 1)
Quarter: 2019Q1

REPORT INFORMATION
  Report Type: Spontaneous
  Country: IT (occurrence: IT)
  Receive Date: 20190330
  Receipt Date: 20190330
  Transmission Date: 20190418
  Serious: Yes (Other)
  Sender: FDA-Public Use
  Company Number: IT-ACCORD-115999

PATIENT
  Age: 54 Year
  Sex: Male

DRUGS (8)
  1. BRILIQUE [Concomitant]
     Active Substance: TICAGRELOR
     Indication: ACUTE MYOCARDIAL INFARCTION
     Dosage: STRENGTH 90 MG, FILM-COATED TABLETS
     Route: 048
     Dates: start: 20181210
  2. OMEGA 3 TEVA [Suspect]
     Active Substance: OMEGA-3-ACID ETHYL ESTERS
     Indication: TYPE V HYPERLIPIDAEMIA
     Route: 048
     Dates: start: 20181209, end: 20181215
  3. PANTOPRAZOLE [Suspect]
     Active Substance: PANTOPRAZOLE
     Indication: PRODUCT USED FOR UNKNOWN INDICATION
     Route: 048
     Dates: start: 20181209, end: 20181215
  4. ACETYLSALICYLIC ACID [Concomitant]
     Active Substance: ASPIRIN
     Route: 048
     Dates: start: 20181210
  5. CARVASIN [Concomitant]
     Active Substance: ISOSORBIDE DINITRATE
     Dosage: STRENGTH 5 MG, SUBLINGUAL TABLETS
     Route: 060
     Dates: start: 20181214
  6. RAMIPRIL. [Suspect]
     Active Substance: RAMIPRIL
     Indication: HYPERTENSION
     Route: 048
     Dates: start: 20181209, end: 20181215
  7. TARGIN [Concomitant]
     Active Substance: NALOXONE HYDROCHLORIDE\OXYCODONE HYDROCHLORIDE
     Indication: MUSCULOSKELETAL PAIN
     Dosage: STRENGTH 5 MG / 2.5MG, PROLONGED-RELEASE TABLETS
     Route: 048
     Dates: start: 20181202
  8. ATORVASTATIN/ATORVASTATIN CALCIUM [Suspect]
     Active Substance: ATORVASTATIN CALCIUM
     Indication: TYPE V HYPERLIPIDAEMIA
     Route: 048
     Dates: start: 20181209, end: 20181215

REACTIONS (2)
  - Rash erythematous [Recovering/Resolving]
  - Pruritus generalised [Recovering/Resolving]

NARRATIVE: CASE EVENT DATE: 20181215
